FAERS Safety Report 4556677-3 (Version None)
Quarter: 2005Q1

REPORT INFORMATION
  Report Type: 
  Country: None (occurrence: None)
  Receive Date: 20050118
  Receipt Date: 20050103
  Transmission Date: 20050727
  Serious: Yes (Other)
  Sender: FDA-Public Use
  Company Number: SUS1-2005-00002

PATIENT
  Age: 32 Year
  Sex: Male
  Weight: 108.8 kg

DRUGS (2)
  1. ADDERALL XR (DEXTROAMPHETAMINE SULFATE, DEXTROAMPHETAMINE SACCHARATE, [Suspect]
     Indication: DEPRESSION
     Dosage: 25 MG, 1X/DAY; QD QAM
     Dates: start: 20041219, end: 20050101
  2. PROPECIA [Concomitant]

REACTIONS (7)
  - AGITATION [None]
  - ANGER [None]
  - BLOOD PRESSURE INCREASED [None]
  - IRRITABILITY [None]
  - MANIA [None]
  - PARANOIA [None]
  - PSYCHOTIC DISORDER [None]
